FAERS Safety Report 4700562-0 (Version None)
Quarter: 2005Q2

REPORT INFORMATION
  Report Type: 
  Country: None (occurrence: None)
  Receive Date: 20050627
  Receipt Date: 20050627
  Transmission Date: 20051028
  Serious: Yes (Death)
  Sender: FDA-Public Use
  Company Number: None

PATIENT
  Sex: Male
  Weight: 97.0698 kg

DRUGS (14)
  1. ENBREL [Suspect]
     Indication: RHEUMATOID ARTHRITIS
     Dosage: 50 MG WEEKLY SUBCUTANEO
     Route: 058
     Dates: start: 20030502, end: 20050622
  2. ACIPHEX [Concomitant]
  3. ATROVENT [Concomitant]
  4. HCTZ-TRIAMPTERINE [Concomitant]
  5. FLONASE [Concomitant]
  6. HYDROXYCHLORAQUINE [Concomitant]
  7. EVOXAC [Concomitant]
  8. DOXYCYCLINE [Concomitant]
  9. METHOCARBAMOL [Concomitant]
  10. PREDNISONE [Concomitant]
  11. METHADONE HCL [Concomitant]
  12. ESKALITH [Concomitant]
  13. TRAZODONE [Concomitant]
  14. ASPIRIN [Concomitant]

REACTIONS (3)
  - PNEUMONIA [None]
  - PULMONARY HAEMORRHAGE [None]
  - SEPTIC SHOCK [None]
